FAERS Safety Report 20783929 (Version 1)
Quarter: 2022Q2

REPORT INFORMATION
  Report Type: Spontaneous
  Country: US (occurrence: US)
  Receive Date: 20220504
  Receipt Date: 20220504
  Transmission Date: 20220721
  Serious: No
  Sender: FDA-Public Use
  Company Number: US-TEVA-2022-US-2026089

PATIENT
  Age: 68 Year
  Sex: Male

DRUGS (5)
  1. METOPROLOL SUCCINATE [Suspect]
     Active Substance: METOPROLOL SUCCINATE
     Indication: Blood pressure abnormal
     Dosage: HALF TABLET IN MORNING AND NIGHT
     Route: 065
  2. METOPROLOL SUCCINATE [Suspect]
     Active Substance: METOPROLOL SUCCINATE
     Indication: Blood pressure abnormal
     Route: 065
  3. CLARITIN [Concomitant]
     Active Substance: LORATADINE
  4. ASPIRIN [Concomitant]
     Active Substance: ASPIRIN
  5. VALSARTAN [Concomitant]
     Active Substance: VALSARTAN

REACTIONS (5)
  - Hypersensitivity [Unknown]
  - Dyspnoea [Unknown]
  - Malaise [Unknown]
  - Asthenia [Unknown]
  - COVID-19 [Unknown]
